FAERS Safety Report 24590849 (Version 2)
Quarter: 2025Q1

REPORT INFORMATION
  Report Type: Report from Study
  Country: US (occurrence: US)
  Receive Date: 20241107
  Receipt Date: 20250206
  Transmission Date: 20250409
  Serious: Yes (Hospitalization)
  Sender: ABBVIE
  Company Number: US-ABBVIE-5992958

PATIENT
  Age: 70 Year
  Sex: Female

DRUGS (2)
  1. VENCLEXTA [Suspect]
     Active Substance: VENETOCLAX
     Indication: Acute myeloid leukaemia recurrent
     Dosage: TAKE 2 TABLET BY MOUTH WITH ONCE DAILY WITH FOOD AND FULL GLASS OF WATER FOR 7 DAYS ON AND 21 DAY...
     Route: 048
     Dates: end: 202412
  2. VENCLEXTA [Suspect]
     Active Substance: VENETOCLAX
     Indication: Acute myeloid leukaemia recurrent
     Dosage: TAKE 2 TABLET BY MOUTH WITH ONCE DAILY WITH FOOD AND FULL GLASS OF WATER FOR 7 DAYS ON AND 21 DAY...
     Route: 048
     Dates: start: 2025

REACTIONS (1)
  - Atrial fibrillation [Unknown]
